FAERS Safety Report 13287055 (Version 1)
Quarter: 2017Q1

REPORT INFORMATION
  Report Type: Spontaneous
  Country: US (occurrence: US)
  Receive Date: 20170302
  Receipt Date: 20170302
  Transmission Date: 20170428
  Serious: No
  Sender: FDA-Public Use
  Company Number: US-TEVA-743586ACC

PATIENT
  Age: 55 Year
  Sex: Female

DRUGS (20)
  1. LYRICA [Concomitant]
     Active Substance: PREGABALIN
  2. SINGULAIR [Concomitant]
     Active Substance: MONTELUKAST SODIUM
  3. CYMBALTA [Concomitant]
     Active Substance: DULOXETINE HYDROCHLORIDE
  4. MECLIZINE [Concomitant]
     Active Substance: MECLIZINE HYDROCHLORIDE
  5. ZANTAC [Concomitant]
     Active Substance: RANITIDINE HYDROCHLORIDE
  6. ALBUTEROL. [Concomitant]
     Active Substance: ALBUTEROL
  7. AMITRIPTYLINE [Concomitant]
     Active Substance: AMITRIPTYLINE
  8. OXYCODONE [Concomitant]
     Active Substance: OXYCODONE
  9. PREDNISONE. [Concomitant]
     Active Substance: PREDNISONE
  10. TOPAMAX [Concomitant]
     Active Substance: TOPIRAMATE
  11. VITAMIN D [Concomitant]
     Active Substance: CHOLECALCIFEROL
  12. ZOFRAN [Concomitant]
     Active Substance: ONDANSETRON HYDROCHLORIDE
  13. COPAXONE [Suspect]
     Active Substance: GLATIRAMER ACETATE
     Indication: MULTIPLE SCLEROSIS
     Route: 058
     Dates: start: 20151017
  14. BACLOFEN. [Concomitant]
     Active Substance: BACLOFEN
  15. BUSPIRONE [Concomitant]
     Active Substance: BUSPIRONE HYDROCHLORIDE
  16. MIRTAZAPINE. [Concomitant]
     Active Substance: MIRTAZAPINE
  17. NORVASC [Concomitant]
     Active Substance: AMLODIPINE BESYLATE
  18. RESTASIS [Concomitant]
     Active Substance: CYCLOSPORINE
  19. FOCALIN [Concomitant]
     Active Substance: DEXMETHYLPHENIDATE HYDROCHLORIDE
  20. SYMBICORT [Concomitant]
     Active Substance: BUDESONIDE\FORMOTEROL FUMARATE DIHYDRATE

REACTIONS (1)
  - Chest pain [Unknown]

NARRATIVE: CASE EVENT DATE: 20170125
